FAERS Safety Report 18294508 (Version 1)
Quarter: 2020Q3

REPORT INFORMATION
  Report Type: Spontaneous
  Country: US (occurrence: US)
  Receive Date: 20200922
  Receipt Date: 20200922
  Transmission Date: 20201103
  Serious: Yes (Hospitalization)
  Sender: FDA-Public Use
  Company Number: None

PATIENT
  Sex: Male

DRUGS (12)
  1. SILDENAFIL 20MG TAB [Suspect]
     Active Substance: SILDENAFIL
     Indication: PULMONARY ARTERIAL HYPERTENSION
     Route: 048
     Dates: start: 20200328
  2. CLOPIDOGREL [Concomitant]
     Active Substance: CLOPIDOGREL BISULFATE
  3. ESCITALOPRAM [Concomitant]
     Active Substance: ESCITALOPRAM OXALATE
  4. UPTRAVI [Concomitant]
     Active Substance: SELEXIPAG
  5. MYCOPHENOLAT [Concomitant]
     Active Substance: MYCOPHENOLATE MOFETIL
  6. WARFARIN [Concomitant]
     Active Substance: WARFARIN
  7. ATORVASTATIN [Concomitant]
     Active Substance: ATORVASTATIN
  8. LASIX [Concomitant]
     Active Substance: FUROSEMIDE
  9. TOPROL XL [Concomitant]
     Active Substance: METOPROLOL SUCCINATE
  10. GABAPENTIN. [Concomitant]
     Active Substance: GABAPENTIN
  11. LOSARTAN POT [Concomitant]
     Active Substance: LOSARTAN POTASSIUM
  12. SPIRONOLACT [Concomitant]
     Active Substance: SPIRONOLACTONE

REACTIONS (1)
  - Spinal operation [None]
